FAERS Safety Report 10581184 (Version 1)
Quarter: 2014Q4

REPORT INFORMATION
  Report Type: Spontaneous
  Country: US (occurrence: None)
  Receive Date: 20141110
  Receipt Date: 20141110
  Transmission Date: 20150529
  Serious: Yes (Hospitalization, Other)
  Sender: FDA-Public Use
  Company Number: IMP_08047_2014

PATIENT
  Sex: Female

DRUGS (24)
  1. TRICOR [Suspect]
     Active Substance: FENOFIBRATE
     Indication: BLOOD CHOLESTEROL
     Dosage: (145 MG QD UNKNOWN)
     Dates: end: 2014
  2. SYNTHROID [Concomitant]
     Active Substance: LEVOTHYROXINE SODIUM
  3. EXFORGE [Concomitant]
     Active Substance: AMLODIPINE BESYLATE\VALSARTAN
  4. VITAMIN B12 [Concomitant]
     Active Substance: CYANOCOBALAMIN
  5. SALBUTAMOL [Concomitant]
     Active Substance: ALBUTEROL
  6. VITAMIN D [Concomitant]
     Active Substance: CHOLECALCIFEROL
  7. TOCOPHEROL [Concomitant]
     Active Substance: TOCOPHEROL
  8. HUMIRA [Suspect]
     Active Substance: ADALIMUMAB
     Indication: CROHN^S DISEASE
     Dosage: (40 MG 1X/2 WEEKS, PRE-FILLED PEN UNKNOWN)
     Dates: end: 2014
  9. PROZAC [Concomitant]
     Active Substance: FLUOXETINE HYDROCHLORIDE
  10. VALIUM [Concomitant]
     Active Substance: DIAZEPAM
  11. TOPAMAX [Concomitant]
     Active Substance: TOPIRAMATE
  12. RANITIDINE HYDROCHLORIDE. [Concomitant]
     Active Substance: RANITIDINE HYDROCHLORIDE
  13. ZETIA [Concomitant]
     Active Substance: EZETIMIBE
  14. PROBIOTICS [Concomitant]
     Active Substance: PROBIOTICS NOS
  15. PRASTERONE [Concomitant]
     Active Substance: PRASTERONE
  16. ZANTAC [Concomitant]
     Active Substance: RANITIDINE HYDROCHLORIDE
  17. AMBIEN [Concomitant]
     Active Substance: ZOLPIDEM TARTRATE
  18. HUMIRA [Suspect]
     Active Substance: ADALIMUMAB
     Indication: RHEUMATOID ARTHRITIS
     Dosage: (40 MG 1X/2 WEEKS, PRE-FILLED PEN UNKNOWN)
     Dates: end: 2014
  19. NUVIGIL [Concomitant]
     Active Substance: ARMODAFINIL
  20. CALCIUM CARBONATE W/VITAMIN D NOS CALCIUM CARBONATE W/VITAMIN D NOS (UNKNOWN UNTIL UNKNOWN) [Concomitant]
  21. DYAZIDE [Concomitant]
     Active Substance: HYDROCHLOROTHIAZIDE\TRIAMTERENE
  22. ASPIRIN. [Concomitant]
     Active Substance: ASPIRIN
  23. TYLOX [Concomitant]
     Active Substance: ACETAMINOPHEN\OXYCODONE HYDROCHLORIDE
  24. OXYCODONE [Concomitant]
     Active Substance: OXYCODONE

REACTIONS (6)
  - Exostosis [None]
  - Sciatica [None]
  - Intervertebral disc protrusion [None]
  - Scar [None]
  - Back pain [None]
  - Hypoaesthesia [None]

NARRATIVE: CASE EVENT DATE: 2012
